FAERS Safety Report 11212433 (Version 1)
Quarter: 2015Q2

REPORT INFORMATION
  Report Type: Report from Study
  Country: FR (occurrence: FR)
  Receive Date: 20150623
  Receipt Date: 20150623
  Transmission Date: 20150821
  Serious: Yes (Hospitalization)
  Sender: FDA-Public Use
  Company Number: FR-GLAXOSMITHKLINE-FR2015GSK087915

PATIENT
  Sex: Male

DRUGS (9)
  1. INEGY [Concomitant]
     Active Substance: EZETIMIBE\SIMVASTATIN
  2. TENORMIN [Concomitant]
     Active Substance: ATENOLOL
  3. ALDACTONE [Concomitant]
     Active Substance: SPIRONOLACTONE
  4. OMEGA-3-ACID ETHYL ESTERS. [Suspect]
     Active Substance: OMEGA-3-ACID ETHYL ESTERS
     Indication: ISCHAEMIC HEART DISEASE PROPHYLAXIS
     Dosage: UNK
     Dates: start: 20080616
  5. KARDEGIC [Concomitant]
     Active Substance: ASPIRIN LYSINE
  6. OMEGA-3-ACID ETHYL ESTERS. [Suspect]
     Active Substance: OMEGA-3-ACID ETHYL ESTERS
     Dosage: UNK
     Dates: start: 20081209
  7. OMEGA-3-ACID ETHYL ESTERS. [Suspect]
     Active Substance: OMEGA-3-ACID ETHYL ESTERS
     Dosage: UNK
  8. TRIATEC [Concomitant]
     Active Substance: RAMIPRIL
  9. PLAVIX [Concomitant]
     Active Substance: CLOPIDOGREL BISULFATE

REACTIONS (1)
  - Epistaxis [Unknown]

NARRATIVE: CASE EVENT DATE: 20081126
